FAERS Safety Report 16431356 (Version 1)
Quarter: 2019Q2

REPORT INFORMATION
  Report Type: Report from Study
  Country: US (occurrence: US)
  Receive Date: 20190614
  Receipt Date: 20190614
  Transmission Date: 20190711
  Serious: Yes (Hospitalization, Other)
  Sender: FDA-Public Use
  Company Number: US-ASPEN-GLO2019US005726

PATIENT
  Age: 7 Year
  Sex: Male
  Weight: 28.5 kg

DRUGS (18)
  1. METHOTREXATE. [Suspect]
     Active Substance: METHOTREXATE
     Dosage: 12 MG (DELAYED INTENSIFICATION DAYS 1, 29, 36)
     Route: 037
     Dates: start: 20190315
  2. DEXAMETHASONE. [Suspect]
     Active Substance: DEXAMETHASONE
     Indication: ACUTE LYMPHOCYTIC LEUKAEMIA
     Dosage: 4.75 MG, BID (DELAYED INTENSIFICATION DAYS 1-7 AND 15-21)
     Route: 048
     Dates: start: 20190201
  3. ERWINIA [Suspect]
     Active Substance: ASPARAGINASE ERWINIA CHRYSANTHEMI
     Dosage: 24750 IU, UNK
     Route: 042
     Dates: start: 20190403
  4. CYTARABINE. [Suspect]
     Active Substance: CYTARABINE
     Dosage: 74 MG, (DELAYED INTENSIFICATION DAYS 29-32 AND 36-39)
     Route: 042
     Dates: start: 20190318
  5. DOXORUBICIN [Suspect]
     Active Substance: DOXORUBICIN
     Indication: ACUTE LYMPHOCYTIC LEUKAEMIA
     Dosage: 24 MG, (DELAYED INTENSIFICATION WEEKLY X 3 WEEKS)
     Route: 042
     Dates: start: 20190201
  6. CYTARABINE. [Suspect]
     Active Substance: CYTARABINE
     Indication: ACUTE LYMPHOCYTIC LEUKAEMIA
     Dosage: 74 MG, (DELAYED INTENSIFICATION DAYS 29-32 AND 36-39)
     Route: 042
     Dates: start: 20180910
  7. VINCRISTINE [Suspect]
     Active Substance: VINCRISTINE
     Dosage: 1.5 MG, (DELAYED INTENSIFICATION DAYS 1, 8, 15, 43, 50)
     Route: 042
     Dates: start: 20190329
  8. TIOGUANINE [Suspect]
     Active Substance: THIOGUANINE ANHYDROUS
     Indication: ACUTE LYMPHOCYTIC LEUKAEMIA
     Dosage: 60 MG, QD (DELAYED INTENSIFICATION DAYS 29-42)
     Route: 048
     Dates: start: 20190308
  9. TIOGUANINE [Suspect]
     Active Substance: THIOGUANINE ANHYDROUS
     Dosage: 60 MG, QD
     Route: 048
     Dates: start: 20190319
  10. RUXOLITINIB [Suspect]
     Active Substance: RUXOLITINIB
     Dosage: 50 MG, BID X 14 DAYS
     Route: 065
     Dates: start: 20190321
  11. CYCLOPHOSPHAMIDE. [Suspect]
     Active Substance: CYCLOPHOSPHAMIDE
     Dosage: 990 MG, (DELAYED INTENSIFICATION DAY
     Route: 042
     Dates: start: 20190308
  12. DEXAMETHASONE. [Suspect]
     Active Substance: DEXAMETHASONE
     Dosage: 4.75 MG, BID (DELAYED INTENSIFICATION DAYS 1-7 AND 15-21)
     Route: 048
     Dates: start: 20190221
  13. DOXORUBICIN [Suspect]
     Active Substance: DOXORUBICIN
     Dosage: 24 MG, (DELAYED INTENSIFICATION WEEKLY X 3 WEEKS)
     Route: 042
     Dates: start: 20190215
  14. METHOTREXATE. [Suspect]
     Active Substance: METHOTREXATE
     Indication: ACUTE LYMPHOCYTIC LEUKAEMIA
     Dosage: 12 MG (DELAYED INTENSIFICATION DAYS 1, 29, 36)
     Route: 037
     Dates: start: 20180910
  15. CYCLOPHOSPHAMIDE. [Suspect]
     Active Substance: CYCLOPHOSPHAMIDE
     Indication: ACUTE LYMPHOCYTIC LEUKAEMIA
     Dosage: 990 MG, (DELAYED INTENSIFICATION DAY
     Route: 042
     Dates: start: 20180910
  16. RUXOLITINIB [Suspect]
     Active Substance: RUXOLITINIB
     Indication: ACUTE LYMPHOCYTIC LEUKAEMIA
     Dosage: 50 MG, BID X 14 DAYS
     Route: 065
     Dates: start: 20180910
  17. VINCRISTINE [Suspect]
     Active Substance: VINCRISTINE
     Indication: ACUTE LYMPHOCYTIC LEUKAEMIA
     Dosage: 1.5 MG, (DELAYED INTENSIFICATION DAYS 1, 8, 15, 43, 50)
     Route: 042
     Dates: start: 20180924
  18. ERWINIA [Suspect]
     Active Substance: ASPARAGINASE ERWINIA CHRYSANTHEMI
     Indication: ACUTE LYMPHOCYTIC LEUKAEMIA
     Dosage: 24750 IU, UNK
     Route: 042
     Dates: start: 20181024

REACTIONS (1)
  - Febrile neutropenia [Recovered/Resolved]

NARRATIVE: CASE EVENT DATE: 20190407
